FAERS Safety Report 20115666 (Version 1)
Quarter: 2021Q4

REPORT INFORMATION
  Report Type: Spontaneous
  Country: ES (occurrence: ES)
  Receive Date: 20211126
  Receipt Date: 20211126
  Transmission Date: 20220303
  Serious: Yes (Other)
  Sender: FDA-Public Use
  Company Number: None

PATIENT
  Sex: Female
  Weight: 94 kg

DRUGS (2)
  1. RIFAXIMIN [Suspect]
     Active Substance: RIFAXIMIN
     Indication: Enteritis infectious
     Dosage: 2 PILLS EVERY 6 HOURS
     Route: 048
     Dates: start: 20200727, end: 20200809
  2. CIPROFLOXACINO RATIO [Concomitant]
     Indication: Enteritis infectious
     Dates: start: 20200727, end: 20200809

REACTIONS (6)
  - Fatigue [Recovering/Resolving]
  - Chest pain [Recovering/Resolving]
  - Malaise [Recovering/Resolving]
  - Asthenia [Recovering/Resolving]
  - Decreased appetite [Recovering/Resolving]
  - Headache [Recovering/Resolving]

NARRATIVE: CASE EVENT DATE: 20200803
